FAERS Safety Report 9501030 (Version 1)
Quarter: 2013Q1

REPORT INFORMATION
  Report Type: Spontaneous
  Country: US (occurrence: None)
  Receive Date: 20130107
  Receipt Date: 20130107
  Transmission Date: 20140127
  Serious: No
  Sender: FDA-Public Use
  Company Number: PHEH2012US021297

PATIENT
  Age: 66 Year
  Sex: Female
  Weight: 68 kg

DRUGS (3)
  1. GILENYA [Suspect]
     Route: 048
     Dates: end: 201204
  2. FAMPRIDINE [Suspect]
     Route: 048
     Dates: start: 201204, end: 201204
  3. REBIF (INTERFERON BETA-1A) [Concomitant]

REACTIONS (1)
  - Dry mouth [None]
